FAERS Safety Report 6402772-3 (Version None)
Quarter: 2009Q4

REPORT INFORMATION
  Report Type: 
  Country: None (occurrence: None)
  Receive Date: 20091016
  Receipt Date: 20070907
  Transmission Date: 20100525
  Serious: Yes (Disabling)
  Sender: FDA-Public Use
  Company Number: US-ASTRAZENECA-2006UW10692

PATIENT
  Sex: Male
  Weight: 124.1 kg

DRUGS (11)
  1. SEROQUEL [Suspect]
     Dosage: 50 MG-300 MG
     Route: 048
     Dates: start: 20020620
  2. GEMFIBROZIL [Concomitant]
     Route: 048
     Dates: start: 20030709
  3. METFORMIN HYDROCHLORIDE [Concomitant]
     Route: 048
     Dates: start: 20030707
  4. LOVASTATIN [Concomitant]
     Dosage: 20 - 40 MG
     Route: 048
  5. GLYBURIDE [Concomitant]
     Dosage: 5 - 10 MG
     Route: 048
     Dates: start: 20030627
  6. ASPIRIN [Concomitant]
     Route: 065
     Dates: start: 20030707
  7. DEPAKOTE [Concomitant]
     Dosage: 500 - 2000 MG
     Route: 065
  8. LITHIUM [Concomitant]
     Dosage: 300 MG THREE CAPSULES AT BED TIME, 300 MG TWO TWICE DAILY
     Route: 048
  9. ZYPREXA [Concomitant]
     Dosage: 5 - 10 MG
     Route: 065
  10. NALTREXONE HYDROCHLORIDE [Concomitant]
     Route: 065
  11. ZESTRIL [Concomitant]
     Route: 065

REACTIONS (1)
  - ILL-DEFINED DISORDER [None]
